FAERS Safety Report 9796870 (Version 2)
Quarter: 2014Q1

REPORT INFORMATION
  Report Type: Spontaneous
  Country: KR (occurrence: KR)
  Receive Date: 20140103
  Receipt Date: 20140121
  Transmission Date: 20141002
  Serious: Yes (Death, Hospitalization, Other)
  Sender: FDA-Public Use
  Company Number: PHHY2013KR154538

PATIENT
  Age: 40 Year
  Sex: Male

DRUGS (3)
  1. SANDIMMUN NEORAL [Suspect]
     Dosage: 150 MG, UNK
  2. PRANDIN//DEFLAZACORT [Suspect]
     Indication: IMMUNOSUPPRESSION
     Dosage: 12 MG, UNK
  3. NOREPINEPHRINE [Concomitant]
     Dosage: 0.188 UG/KG, UNK

REACTIONS (2)
  - Death [Fatal]
  - Post transplant lymphoproliferative disorder [Unknown]
